FAERS Safety Report 18420231 (Version 2)
Quarter: 2020Q4

REPORT INFORMATION
  Report Type: Spontaneous
  Country: US (occurrence: US)
  Receive Date: 20201023
  Receipt Date: 20201027
  Transmission Date: 20210114
  Serious: Yes (Other)
  Sender: FDA-Public Use
  Company Number: US-PFIZER INC-2020411225

PATIENT
  Age: 80 Year
  Sex: Female

DRUGS (1)
  1. XALKORI [Suspect]
     Active Substance: CRIZOTINIB
     Indication: NON-SMALL CELL LUNG CANCER STAGE IV
     Dosage: 250 MG, 2X/DAY (250MG CAPSULE TWICE A DAY THROUGH FEEDING TUBE)
     Route: 048
     Dates: start: 20201006

REACTIONS (16)
  - Second primary malignancy [Unknown]
  - Walking disability [Unknown]
  - Asthenia [Unknown]
  - Seizure [Unknown]
  - Weight decreased [Unknown]
  - Speech disorder [Unknown]
  - Intentional product misuse [Unknown]
  - Dysphagia [Unknown]
  - Decubitus ulcer [Unknown]
  - Dementia [Unknown]
  - Pharyngeal neoplasm [Unknown]
  - Confusional state [Unknown]
  - Amnesia [Unknown]
  - Cognitive disorder [Unknown]
  - Rash [Unknown]
  - Aggression [Unknown]

NARRATIVE: CASE EVENT DATE: 20201019
